FAERS Safety Report 8799892 (Version 1)
Quarter: 2012Q4

REPORT INFORMATION
  Report Type: 
  Country: US (occurrence: None)
  Receive Date: 20120918
  Receipt Date: 20120918
  Transmission Date: 20130627
  Serious: Yes (Hospitalization)
  Sender: FDA-Public Use
  Company Number: None

PATIENT
  Sex: Female
  Weight: 67.5 kg

DRUGS (6)
  1. CYCLOPHOSPHAMIDE [Suspect]
  2. DOXORUBICIN HYDROCHLORIDE [Suspect]
  3. ETOPOSIDE [Suspect]
  4. PREDNISONE [Suspect]
  5. RITUXIMAB [Suspect]
  6. VINCRISTINE SULFATE [Suspect]

REACTIONS (9)
  - Diarrhoea [None]
  - Fatigue [None]
  - Abdominal pain [None]
  - Nasopharyngitis [None]
  - Activities of daily living impaired [None]
  - Leukopenia [None]
  - Thrombocytopenia [None]
  - Neutropenia [None]
  - Blood calcium abnormal [None]
